FAERS Safety Report 7440895-0 (Version None)
Quarter: 2011Q2

REPORT INFORMATION
  Report Type: 
  Country: None (occurrence: None)
  Receive Date: 20110427
  Receipt Date: 20110425
  Transmission Date: 20111010
  Serious: Yes (Other)
  Sender: FDA-Public Use
  Company Number: US-PFIZER INC-2006032434

PATIENT
  Sex: Female
  Weight: 102 kg

DRUGS (10)
  1. LIPITOR [Suspect]
     Indication: BLOOD CHOLESTEROL INCREASED
     Dosage: 10 MG, 1X/DAY
     Route: 048
  2. HYDROCHLOROTHIAZIDE [Concomitant]
     Dosage: 25 MG HALF TABLET DURING THE AY AND HALF AT NIGHT
  3. CYANOCOBALAMIN/FOLIC ACID/PYRIDOXINE [Concomitant]
     Dosage: UNK
  4. METFORMIN [Concomitant]
     Dosage: 500 MG, 2X/DAY
  5. SITAGLIPTIN [Concomitant]
     Dosage: 100 MG, 1X/DAY
  6. LIPITOR [Suspect]
     Dosage: 20 MG, 1X/DAY
  7. METOPROLOL TARTRATE [Concomitant]
     Indication: HYPERTENSION
     Dosage: 50 MG, 1X/DAY
  8. ZETIA [Concomitant]
     Dosage: UNK
  9. CITALOPRAM [Concomitant]
     Indication: STRESS
     Dosage: 20 MG, 1X/DAY
  10. TRICOR [Concomitant]
     Dosage: 145 MG, 1X/DAY

REACTIONS (2)
  - LIVER FUNCTION TEST ABNORMAL [None]
  - AMNESIA [None]
